APPROVED DRUG PRODUCT: LEVONORGESTREL
Active Ingredient: LEVONORGESTREL
Strength: 0.75MG
Dosage Form/Route: TABLET;ORAL
Application: A202740 | Product #001
Applicant: XIROMED LLC
Approved: Sep 2, 2016 | RLD: No | RS: No | Type: DISCN